APPROVED DRUG PRODUCT: COLESEVELAM HYDROCHLORIDE
Active Ingredient: COLESEVELAM HYDROCHLORIDE
Strength: 3.75GM/PACKET
Dosage Form/Route: FOR SUSPENSION;ORAL
Application: A212886 | Product #001
Applicant: IMPAX LABORATORIES LLC
Approved: Jan 18, 2023 | RLD: No | RS: No | Type: DISCN